FAERS Safety Report 7036077-7 (Version None)
Quarter: 2010Q4

REPORT INFORMATION
  Report Type: 
  Country: None (occurrence: None)
  Receive Date: 20101008
  Receipt Date: 20100927
  Transmission Date: 20110411
  Serious: Yes (Hospitalization)
  Sender: FDA-Public Use
  Company Number: DE-MYLANLABS-2010S1017673

PATIENT
  Age: 84 Year
  Sex: Male
  Weight: 84 kg

DRUGS (5)
  1. ROPINIROLE [Suspect]
     Indication: PARKINSON'S DISEASE
     Dosage: SEIT 01.04.2010 3X0.5MG/TAG, VORHER VOM 02.01.-31.03.2010 2X0.5MG
     Route: 048
     Dates: start: 20100401
  2. TERAZOSIN HCL [Interacting]
     Indication: BENIGN PROSTATIC HYPERPLASIA
     Route: 048
     Dates: start: 20091101
  3. CARMEN [Interacting]
     Indication: HYPERTENSION
     Route: 048
     Dates: start: 20091101
  4. DIGITOXIN [Concomitant]
     Indication: ATRIAL FIBRILLATION
     Route: 048
     Dates: start: 20091101
  5. ACETYLSALICYLIC ACID SRT [Concomitant]
     Indication: ISCHAEMIC HEART DISEASE PROPHYLAXIS
     Route: 048
     Dates: start: 20091101

REACTIONS (2)
  - DRUG INTERACTION [None]
  - SYNCOPE [None]
